FAERS Safety Report 18186481 (Version 2)
Quarter: 2020Q3

REPORT INFORMATION
  Report Type: Report from Study
  Country: IT (occurrence: IT)
  Receive Date: 20200824
  Receipt Date: 20200831
  Transmission Date: 20201103
  Serious: Yes (Other)
  Sender: FDA-Public Use
  Company Number: IT-PFIZER INC-2020-07678

PATIENT
  Age: 71 Year
  Weight: 67 kg

DRUGS (3)
  1. DIBASE [Concomitant]
     Active Substance: CHOLECALCIFEROL
     Indication: VITAMIN D DEFICIENCY
     Dosage: 25 DROP (25 GTT)
     Dates: start: 2018
  2. EUTIROX [Concomitant]
     Active Substance: LEVOTHYROXINE SODIUM
     Indication: AUTOIMMUNE THYROIDITIS
     Dosage: 75 UG
     Dates: start: 2018
  3. BRAFTOVI [Suspect]
     Active Substance: ENCORAFENIB
     Indication: COLON CANCER METASTATIC
     Dosage: 300 MG, 1X/DAY
     Route: 048
     Dates: start: 20200409, end: 20200619

REACTIONS (4)
  - Second primary malignancy [Recovered/Resolved]
  - Squamous cell carcinoma [Unknown]
  - Squamous cell carcinoma [Recovered/Resolved]
  - Nodule [Unknown]

NARRATIVE: CASE EVENT DATE: 20200619
